FAERS Safety Report 6147433-3 (Version None)
Quarter: 2009Q2

REPORT INFORMATION
  Report Type: 
  Country: None (occurrence: None)
  Receive Date: 20090408
  Receipt Date: 20090331
  Transmission Date: 20091009
  Serious: Yes (Hospitalization)
  Sender: FDA-Public Use
  Company Number: US-ASTRAZENECA-2009UW08070

PATIENT
  Age: 61 Year
  Sex: Female

DRUGS (3)
  1. RHINOCORT [Suspect]
     Route: 045
  2. NEXIUM [Suspect]
     Route: 048
     Dates: end: 20090323
  3. TOPROL-XL [Suspect]
     Route: 048
     Dates: end: 20010101

REACTIONS (1)
  - MYOCARDIAL INFARCTION [None]
